FAERS Safety Report 12672094 (Version 1)
Quarter: 2016Q3

REPORT INFORMATION
  Report Type: Spontaneous
  Country: US (occurrence: US)
  Receive Date: 20160822
  Receipt Date: 20160822
  Transmission Date: 20161109
  Serious: No
  Sender: FDA-Public Use
  Company Number: US-BAYER-2016-162846

PATIENT
  Age: 28 Year
  Sex: Female
  Weight: 116.1 kg

DRUGS (1)
  1. ALEVE [Suspect]
     Active Substance: NAPROXEN SODIUM
     Indication: MIGRAINE
     Dosage: 4 DF, QD
     Route: 048
     Dates: start: 201606

REACTIONS (2)
  - Therapeutic response unexpected [None]
  - Product use issue [None]
